FAERS Safety Report 23955962 (Version 1)
Quarter: 2024Q2

REPORT INFORMATION
  Report Type: Spontaneous
  Country: US (occurrence: None)
  Receive Date: 20240607
  Receipt Date: 20240607
  Transmission Date: 20240716
  Serious: Yes (Hospitalization)
  Sender: FDA-Public Use
  Company Number: None

PATIENT
  Age: 22 Year
  Sex: Male
  Weight: 166 kg

DRUGS (1)
  1. HALOPERIDOL DECANOATE [Suspect]
     Active Substance: HALOPERIDOL DECANOATE
     Indication: Schizoaffective disorder
     Dosage: 50MG/ML IM
     Route: 030
     Dates: start: 20240315, end: 20240406

REACTIONS (5)
  - Mental status changes [None]
  - Musculoskeletal stiffness [None]
  - Dystonia [None]
  - Muscle spasms [None]
  - Rhabdomyolysis [None]

NARRATIVE: CASE EVENT DATE: 20240408
